FAERS Safety Report 6376821-5 (Version None)
Quarter: 2009Q3

REPORT INFORMATION
  Report Type: 
  Country: None (occurrence: None)
  Receive Date: 20090924
  Receipt Date: 20090924
  Transmission Date: 20100115
  Serious: Yes (Hospitalization, Disabling)
  Sender: FDA-Public Use
  Company Number: None

PATIENT
  Age: 32 Year
  Sex: Female
  Weight: 47.1741 kg

DRUGS (7)
  1. LEUPROLIDE ACETATE [Suspect]
     Indication: ENDOMETRIOSIS
     Dosage: 10 UNITS (0.5MG) QD SC X 6 1/2 MONTHS : 10-20 UNITS (.5-1MG) QD OR BID SC X 2 1/2 MONTHS
     Route: 058
     Dates: start: 19890101, end: 19890701
  2. LEUPROLIDE ACETATE [Suspect]
     Indication: IN VITRO FERTILISATION
     Dosage: 10 UNITS (0.5MG) QD SC X 6 1/2 MONTHS : 10-20 UNITS (.5-1MG) QD OR BID SC X 2 1/2 MONTHS
     Route: 058
     Dates: start: 19890101, end: 19890701
  3. LEUPROLIDE ACETATE [Suspect]
     Indication: ENDOMETRIOSIS
     Dosage: 10 UNITS (0.5MG) QD SC X 6 1/2 MONTHS : 10-20 UNITS (.5-1MG) QD OR BID SC X 2 1/2 MONTHS
     Route: 058
     Dates: start: 19900910, end: 19910801
  4. LEUPROLIDE ACETATE [Suspect]
     Indication: IN VITRO FERTILISATION
     Dosage: 10 UNITS (0.5MG) QD SC X 6 1/2 MONTHS : 10-20 UNITS (.5-1MG) QD OR BID SC X 2 1/2 MONTHS
     Route: 058
     Dates: start: 19900910, end: 19910801
  5. IRON [Concomitant]
  6. FIORINAL [Concomitant]
  7. TYL #3 [Concomitant]

REACTIONS (63)
  - ADENOMA BENIGN [None]
  - ANAEMIA [None]
  - ARTHRALGIA [None]
  - ARTHRITIS [None]
  - ARTHROPATHY [None]
  - ASCITES [None]
  - ATRIAL FIBRILLATION [None]
  - BASAL CELL CARCINOMA [None]
  - BLOOD IMMUNOGLOBULIN M INCREASED [None]
  - BLOOD POTASSIUM DECREASED [None]
  - BONE PAIN [None]
  - BRADYCARDIA [None]
  - BREAST CYST [None]
  - CARPAL TUNNEL SYNDROME [None]
  - COGNITIVE DISORDER [None]
  - DEHYDRATION [None]
  - DIZZINESS [None]
  - DUODENAL ULCER [None]
  - FIBROMYALGIA [None]
  - GALLBLADDER DISORDER [None]
  - GAMMOPATHY [None]
  - GASTRIC DISORDER [None]
  - GASTRITIS [None]
  - GASTRITIS EROSIVE [None]
  - GASTROINTESTINAL HAEMORRHAGE [None]
  - GASTROOESOPHAGEAL REFLUX DISEASE [None]
  - HAEMATURIA [None]
  - HEART RATE IRREGULAR [None]
  - HEPATOMEGALY [None]
  - HOT FLUSH [None]
  - HYPERLIPIDAEMIA [None]
  - IMPAIRED GASTRIC EMPTYING [None]
  - IMPAIRED WORK ABILITY [None]
  - INSOMNIA [None]
  - IRRITABLE BOWEL SYNDROME [None]
  - LYMPHADENOPATHY [None]
  - MEMORY IMPAIRMENT [None]
  - MUSCLE TWITCHING [None]
  - MYALGIA [None]
  - NEURALGIA [None]
  - OEDEMA PERIPHERAL [None]
  - OSTEOARTHRITIS [None]
  - OSTEOPENIA [None]
  - OSTEOPOROSIS [None]
  - OVARIAN CYST [None]
  - OVARIAN DISORDER [None]
  - PAIN IN EXTREMITY [None]
  - PALPITATIONS [None]
  - PARAESTHESIA [None]
  - PUPILS UNEQUAL [None]
  - RADICULITIS [None]
  - RENAL CYST [None]
  - SCOLIOSIS [None]
  - SKIN DISORDER [None]
  - SPINAL OSTEOARTHRITIS [None]
  - STEATORRHOEA [None]
  - TOOTH LOSS [None]
  - TREATMENT FAILURE [None]
  - UTERINE LEIOMYOMA [None]
  - VITAMIN B12 DEFICIENCY [None]
  - VITAMIN D DEFICIENCY [None]
  - WEIGHT DECREASED [None]
  - WEIGHT INCREASED [None]
